FAERS Safety Report 7724503-7 (Version None)
Quarter: 2011Q3

REPORT INFORMATION
  Report Type: 
  Country: None (occurrence: None)
  Receive Date: 20110901
  Receipt Date: 20110824
  Transmission Date: 20111222
  Serious: Yes (Other)
  Sender: FDA-Public Use
  Company Number: JP-GLAXOSMITHKLINE-B0721993A

PATIENT
  Age: 58 Year
  Sex: Female

DRUGS (1)
  1. PAXIL [Suspect]
     Indication: DEPRESSION
     Dosage: 10MG PER DAY
     Route: 048
     Dates: start: 20090801, end: 20110501

REACTIONS (4)
  - SPASTIC PARALYSIS [None]
  - PARKINSONISM [None]
  - TREMOR [None]
  - MOVEMENT DISORDER [None]
